FAERS Safety Report 23996215 (Version 1)
Quarter: 2024Q2

REPORT INFORMATION
  Report Type: Spontaneous
  Country: SK (occurrence: SK)
  Receive Date: 20240620
  Receipt Date: 20240620
  Transmission Date: 20240716
  Serious: Yes (Hospitalization)
  Sender: FDA-Public Use
  Company Number: SK-ABBVIE-5806466

PATIENT
  Sex: Male
  Weight: 84 kg

DRUGS (4)
  1. RINVOQ [Suspect]
     Active Substance: UPADACITINIB
     Indication: Dermatitis atopic
     Route: 048
     Dates: start: 20231228
  2. Dalacin [Concomitant]
     Indication: Product used for unknown indication
     Dosage: FREQUENCY TEXT: EVERY 8 HOURS
     Dates: start: 20240524
  3. DESLORATADINE [Concomitant]
     Active Substance: DESLORATADINE
     Indication: Product used for unknown indication
     Dosage: FREQUENCY TEXT: 1-0-0
  4. Perindamlostad [Concomitant]
     Indication: Product used for unknown indication
     Dosage: 4MG/10MG

REACTIONS (10)
  - Leukopenia [Recovering/Resolving]
  - Chills [Unknown]
  - Somnolence [Unknown]
  - Thrombocytopenia [Recovering/Resolving]
  - Pain in jaw [Unknown]
  - Pyrexia [Unknown]
  - Asthenia [Unknown]
  - Chills [Unknown]
  - Fatigue [Unknown]
  - Bone pain [Unknown]

NARRATIVE: CASE EVENT DATE: 20240520
